FAERS Safety Report 24126748 (Version 1)
Quarter: 2024Q3

REPORT INFORMATION
  Report Type: Spontaneous
  Country: US (occurrence: None)
  Receive Date: 20240722
  Receipt Date: 20240722
  Transmission Date: 20241017
  Serious: No
  Sender: Public
  Company Number: None

PATIENT
  Sex: Female

DRUGS (1)
  1. TEZSPIRE [Suspect]
     Active Substance: TEZEPELUMAB-EKKO
     Indication: Asthma
     Dosage: 210 MG/ML  EVERY 4 WEEKS SUBCUTANEOUS
     Route: 058
     Dates: start: 20240501

REACTIONS (2)
  - Arthralgia [None]
  - Oropharyngeal pain [None]
